FAERS Safety Report 8226808-2 (Version None)
Quarter: 2012Q1

REPORT INFORMATION
  Report Type: 
  Country: None (occurrence: None)
  Receive Date: 20120322
  Receipt Date: 20120314
  Transmission Date: 20120608
  Serious: Yes (Other)
  Sender: FDA-Public Use
  Company Number: PT-BAYER-2012-024931

PATIENT
  Age: 36 Year

DRUGS (1)
  1. NIFEDIPINE [Suspect]
     Indication: RAYNAUD'S PHENOMENON

REACTIONS (2)
  - RAYNAUD'S PHENOMENON [None]
  - SKIN ULCER [None]
